FAERS Safety Report 21903726 (Version 1)
Quarter: 2023Q1

REPORT INFORMATION
  Report Type: Spontaneous
  Country: US (occurrence: None)
  Receive Date: 20230123
  Receipt Date: 20230123
  Transmission Date: 20230417
  Serious: Yes (Other)
  Sender: FDA-Public Use
  Company Number: None

PATIENT
  Age: 62 Year
  Sex: Male
  Weight: 81 kg

DRUGS (3)
  1. FLUOROURACIL [Suspect]
     Active Substance: FLUOROURACIL
     Indication: Skin cancer
     Dosage: FREQUENCY : TWICE A DAY;?
     Route: 061
     Dates: start: 20230111, end: 20230113
  2. Doterra multi vitamins/supplements [Concomitant]
  3. FISH OIL [Concomitant]
     Active Substance: FISH OIL

REACTIONS (3)
  - Dizziness [None]
  - Balance disorder [None]
  - Vertigo [None]

NARRATIVE: CASE EVENT DATE: 20230115
